FAERS Safety Report 4352557-7 (Version None)
Quarter: 2004Q2

REPORT INFORMATION
  Report Type: 
  Country: None (occurrence: None)
  Receive Date: 20040427
  Receipt Date: 20040112
  Transmission Date: 20050107
  Serious: No
  Sender: FDA-Public Use
  Company Number: WAES 0401USA00815

PATIENT
  Sex: Male

DRUGS (5)
  1. EMEND [Suspect]
     Indication: CHEMOTHERAPY
     Dosage: SEE IMAGE
     Route: 048
     Dates: start: 20031215, end: 20031215
  2. EMEND [Suspect]
     Indication: PROPHYLAXIS
     Dosage: SEE IMAGE
     Route: 048
     Dates: start: 20031215, end: 20031215
  3. EMEND [Suspect]
     Indication: CHEMOTHERAPY
     Dosage: SEE IMAGE
     Route: 048
     Dates: start: 20031216, end: 20031217
  4. EMEND [Suspect]
     Indication: PROPHYLAXIS
     Dosage: SEE IMAGE
     Route: 048
     Dates: start: 20031216, end: 20031217
  5. CARBOPLATIN [Concomitant]

REACTIONS (2)
  - INCREASED UPPER AIRWAY SECRETION [None]
  - THROAT IRRITATION [None]
